FAERS Safety Report 14756616 (Version 2)
Quarter: 2018Q2

REPORT INFORMATION
  Report Type: Spontaneous
  Country: US (occurrence: US)
  Receive Date: 20180413
  Receipt Date: 20180605
  Transmission Date: 20180711
  Serious: No
  Sender: FDA-Public Use
  Company Number: US-GLAXOSMITHKLINE-US2018062425

PATIENT
  Age: 66 Year
  Sex: Female

DRUGS (3)
  1. ATORVASTATIN [Concomitant]
     Active Substance: ATORVASTATIN
  2. ANORO ELLIPTA [Suspect]
     Active Substance: UMECLIDINIUM BROMIDE\VILANTEROL TRIFENATATE
     Indication: CHRONIC OBSTRUCTIVE PULMONARY DISEASE
     Dosage: 1 PUFF(S), QD
     Route: 055
     Dates: start: 201712
  3. IBUPROFEN. [Concomitant]
     Active Substance: IBUPROFEN

REACTIONS (2)
  - Cough [Unknown]
  - Product quality issue [Unknown]

NARRATIVE: CASE EVENT DATE: 201802
